FAERS Safety Report 5128501-1 (Version None)
Quarter: 2006Q4

REPORT INFORMATION
  Report Type: 
  Country: None (occurrence: None)
  Receive Date: 20061011
  Receipt Date: 20060913
  Transmission Date: 20070319
  Serious: Yes (Hospitalization, Disabling, Other)
  Sender: FDA-Public Use
  Company Number: 2005-11-1267

PATIENT
  Age: 54 Year
  Sex: Female
  Weight: 83.9154 kg

DRUGS (12)
  1. PEG-INTRON [Suspect]
     Indication: HEPATITIS C
     Dates: start: 20050614
  2. REBETOL [Suspect]
     Indication: HEPATITIS C
     Dates: start: 20050614
  3. FLONASE (CON.) [Concomitant]
  4. SOMA (CON.) [Concomitant]
  5. OXYCONTIN (CON.) [Concomitant]
  6. ADVAIR (CON.) [Concomitant]
  7. LISINOPRIL (CON.) [Concomitant]
  8. PREVACID (CON.) [Concomitant]
  9. NORCO (CON.) [Concomitant]
  10. ALBUTEROL SULFATE (CON.) [Concomitant]
  11. COMPAZINE (PREV.) [Concomitant]
  12. SULFA (PREV.) [Concomitant]

REACTIONS (49)
  - ABDOMINAL PAIN LOWER [None]
  - ABNORMAL BEHAVIOUR [None]
  - ALOPECIA [None]
  - ANOREXIA [None]
  - ANXIETY [None]
  - ARTHRALGIA [None]
  - ASTHMA [None]
  - BLOOD CALCIUM DECREASED [None]
  - BLOOD GLUCOSE INCREASED [None]
  - BRONCHITIS [None]
  - CHEST DISCOMFORT [None]
  - CHILLS [None]
  - COLD SWEAT [None]
  - DEHYDRATION [None]
  - DEPRESSED LEVEL OF CONSCIOUSNESS [None]
  - DEPRESSION [None]
  - DISTURBANCE IN ATTENTION [None]
  - DIVERTICULITIS [None]
  - DIZZINESS [None]
  - DRUG INEFFECTIVE [None]
  - ECONOMIC PROBLEM [None]
  - FATIGUE [None]
  - FEAR [None]
  - FEELING ABNORMAL [None]
  - FEELING HOT [None]
  - HAEMATOCRIT DECREASED [None]
  - HAEMOGLOBIN DECREASED [None]
  - HAEMOPHILUS INFECTION [None]
  - HYPERHIDROSIS [None]
  - HYPERVENTILATION [None]
  - IRRITABILITY [None]
  - NEUTROPHIL COUNT DECREASED [None]
  - PAIN IN EXTREMITY [None]
  - PANCREATITIS [None]
  - PHARYNGOLARYNGEAL PAIN [None]
  - PLEURISY [None]
  - PROTEIN URINE [None]
  - PRURITUS [None]
  - RECTAL HAEMORRHAGE [None]
  - RED BLOOD CELL SEDIMENTATION RATE ABNORMAL [None]
  - SOCIAL AVOIDANT BEHAVIOUR [None]
  - SYSTEMIC LUPUS ERYTHEMATOSUS [None]
  - TOOTH ABSCESS [None]
  - TOOTH DISORDER [None]
  - TOOTH LOSS [None]
  - UPPER RESPIRATORY TRACT INFECTION [None]
  - VIRAL INFECTION [None]
  - WEIGHT DECREASED [None]
  - WHITE BLOOD CELL COUNT DECREASED [None]
